FAERS Safety Report 7486698-2 (Version None)
Quarter: 2011Q2

REPORT INFORMATION
  Report Type: 
  Country: None (occurrence: None)
  Receive Date: 20110517
  Receipt Date: 20100824
  Transmission Date: 20111010
  Serious: No
  Sender: FDA-Public Use
  Company Number: US-NOVEN-ALL1-2010-03779

PATIENT

DRUGS (5)
  1. DAYTRANA [Suspect]
     Dosage: 15 MG, 1X/DAY:QD
     Route: 062
     Dates: start: 20090401, end: 20090101
  2. DAYTRANA [Suspect]
     Dosage: UNK MG, 1X/DAY:QD (CUT CORNER OFF OF 30 MG PATCH)
     Route: 062
     Dates: start: 20100501
  3. DAYTRANA [Suspect]
     Dosage: UNK, 1X/DAY:QD
     Route: 062
     Dates: start: 20090101, end: 20090101
  4. DAYTRANA [Suspect]
     Dosage: 20 MG, 1X/DAY:QD
     Route: 062
     Dates: start: 20090101, end: 20100501
  5. ALLEGRA [Concomitant]
     Dosage: UNK, AS REQ'D
     Route: 048

REACTIONS (5)
  - INSOMNIA [None]
  - DECREASED APPETITE [None]
  - IMPULSIVE BEHAVIOUR [None]
  - WRONG TECHNIQUE IN DRUG USAGE PROCESS [None]
  - DISTRACTIBILITY [None]
